FAERS Safety Report 25151350 (Version 3)
Quarter: 2025Q2

REPORT INFORMATION
  Report Type: Report from Study
  Country: CH (occurrence: CH)
  Receive Date: 20250402
  Receipt Date: 20250425
  Transmission Date: 20250716
  Serious: Yes (Death)
  Sender: AMGEN
  Company Number: CH-AMGEN-CHENI2025064212

PATIENT
  Sex: Female

DRUGS (6)
  1. SOTORASIB [Suspect]
     Active Substance: SOTORASIB
     Indication: Non-small cell lung cancer
     Route: 065
     Dates: start: 20231127, end: 2023
  2. SOTORASIB [Suspect]
     Active Substance: SOTORASIB
     Route: 065
     Dates: start: 20230318
  3. SOTORASIB [Suspect]
     Active Substance: SOTORASIB
     Route: 065
     Dates: start: 20240429, end: 2024
  4. SOTORASIB [Suspect]
     Active Substance: SOTORASIB
     Route: 065
     Dates: start: 20240817, end: 2024
  5. SOTORASIB [Suspect]
     Active Substance: SOTORASIB
     Route: 065
     Dates: start: 20241129, end: 2024
  6. SOTORASIB [Suspect]
     Active Substance: SOTORASIB
     Route: 065
     Dates: start: 20241223, end: 20250114

REACTIONS (1)
  - Death [Fatal]
